FAERS Safety Report 6424197-7 (Version None)
Quarter: 2009Q4

REPORT INFORMATION
  Report Type: 
  Country: None (occurrence: None)
  Receive Date: 20091102
  Receipt Date: 20091021
  Transmission Date: 20100525
  Serious: Yes (Death, Hospitalization, Other)
  Sender: FDA-Public Use
  Company Number: US-PFIZER INC-2009288189

PATIENT
  Sex: Male
  Weight: 127 kg

DRUGS (5)
  1. LYRICA [Suspect]
     Indication: BACK PAIN
     Route: 048
     Dates: start: 20090101
  2. COUMADIN [Concomitant]
     Indication: BLOOD DISORDER
  3. DILANTIN [Concomitant]
  4. VICODIN [Concomitant]
  5. OXYMORPHONE [Concomitant]
     Dosage: FREQUENCY: 3X/DAY,

REACTIONS (12)
  - CHEST DISCOMFORT [None]
  - DEATH [None]
  - DYSPNOEA [None]
  - HEADACHE [None]
  - LOCAL SWELLING [None]
  - MYOCARDIAL INFARCTION [None]
  - OEDEMA [None]
  - OEDEMA PERIPHERAL [None]
  - PAIN [None]
  - PARAESTHESIA [None]
  - PERICARDIAL DRAINAGE [None]
  - SWELLING FACE [None]
